FAERS Safety Report 16352351 (Version 1)
Quarter: 2019Q2

REPORT INFORMATION
  Report Type: Spontaneous
  Country: US (occurrence: US)
  Receive Date: 20190524
  Receipt Date: 20190524
  Transmission Date: 20190711
  Serious: Yes (Other)
  Sender: FDA-Public Use
  Company Number: US-TORRENT-00008760

PATIENT
  Age: 79 Year
  Sex: Male
  Weight: 81 kg

DRUGS (1)
  1. LOSARTAN. [Suspect]
     Active Substance: LOSARTAN
     Indication: PRODUCT USED FOR UNKNOWN INDICATION
     Dosage: 6 MONTHS
     Dates: start: 201805

REACTIONS (1)
  - Glioblastoma [Unknown]

NARRATIVE: CASE EVENT DATE: 20181112
